FAERS Safety Report 24980442 (Version 2)
Quarter: 2025Q1

REPORT INFORMATION
  Report Type: Spontaneous
  Country: US (occurrence: US)
  Receive Date: 20250218
  Receipt Date: 20250317
  Transmission Date: 20250409
  Serious: No
  Sender: BIOGEN
  Company Number: US-BIOGEN-2025BI01296927

PATIENT
  Sex: Female

DRUGS (1)
  1. TYSABRI [Suspect]
     Active Substance: NATALIZUMAB
     Indication: Multiple sclerosis
     Route: 050
     Dates: start: 20121227

REACTIONS (4)
  - Abdominal pain lower [Unknown]
  - Urinary tract infection [Unknown]
  - Diarrhoea [Unknown]
  - Diverticulitis [Recovered/Resolved]
